FAERS Safety Report 20751166 (Version 1)
Quarter: 2022Q2

REPORT INFORMATION
  Report Type: Other
  Country: CA (occurrence: None)
  Receive Date: 20220426
  Receipt Date: 20220426
  Transmission Date: 20220721
  Serious: Yes (Hospitalization)
  Sender: FDA-Public Use
  Company Number: CA-ROCHE-3025619

PATIENT
  Age: 48 Year
  Sex: Female

DRUGS (8)
  1. RITUXAN [Suspect]
     Active Substance: RITUXIMAB
     Indication: Rheumatoid arthritis
     Route: 042
     Dates: start: 20171020
  2. BENADRYL [Concomitant]
     Active Substance: DIPHENHYDRAMINE HYDROCHLORIDE
     Indication: Premedication
     Dosage: 50 MG MILLIGRAM(S)
     Route: 048
     Dates: start: 20171020
  3. CALCIUM [Concomitant]
     Active Substance: CALCIUM
  4. CORTISONE [Concomitant]
     Active Substance: CORTISONE
     Route: 058
  5. SOLU-MEDROL [Concomitant]
     Active Substance: METHYLPREDNISOLONE SODIUM SUCCINATE
     Indication: Premedication
     Dosage: DRUG START DATE 20-OCT-2017?DRUG END DATE ONGOING?DOSE 100 MG MILLIGRAM(S
     Route: 042
  6. MELOXICAM [Concomitant]
     Active Substance: MELOXICAM
  7. TYLENOL [Concomitant]
     Active Substance: ACETAMINOPHEN
     Indication: Premedication
     Dosage: ORAL DRUG START DATE 20-OCT-2017 DOSE 650 MG MILLIGRAM(S)
  8. VITAMIN B6 [Concomitant]
     Active Substance: PYRIDOXINE HYDROCHLORIDE

REACTIONS (4)
  - COVID-19 [Unknown]
  - Pneumonia [Unknown]
  - Infusion site swelling [Recovered/Resolved]
  - Infusion site pain [Recovered/Resolved]

NARRATIVE: CASE EVENT DATE: 20211101
